FAERS Safety Report 25975537 (Version 1)
Quarter: 2025Q4

REPORT INFORMATION
  Report Type: Spontaneous
  Country: US (occurrence: US)
  Receive Date: 20251029
  Receipt Date: 20251029
  Transmission Date: 20260118
  Serious: Yes (Hospitalization, Other)
  Sender: CIPLA
  Company Number: US-CIPLA (EU) LIMITED-2025US13503

PATIENT

DRUGS (10)
  1. ALBUTEROL [Suspect]
     Active Substance: ALBUTEROL
     Indication: Product used for unknown indication
     Dosage: UNK
     Route: 065
  2. GABAPENTIN [Suspect]
     Active Substance: GABAPENTIN
     Indication: Product used for unknown indication
     Dosage: UNK
     Route: 065
  3. CYCLOBENZAPRINE [Suspect]
     Active Substance: CYCLOBENZAPRINE
     Indication: Product used for unknown indication
     Dosage: UNK
     Route: 065
  4. TUVUSERTIB [Suspect]
     Active Substance: TUVUSERTIB
     Indication: Synovial sarcoma
     Dosage: 180 MILLIGRAM (TOTAL DOSE-2520 MG)
     Route: 065
     Dates: start: 20250729
  5. TUVUSERTIB [Suspect]
     Active Substance: TUVUSERTIB
     Dosage: 180 MILLIGRAM (TOTAL DOSE-2520 MG)
     Route: 065
     Dates: start: 20250826, end: 20250908
  6. PEPOSERTIB [Suspect]
     Active Substance: PEPOSERTIB
     Indication: Synovial sarcoma
     Dosage: 100 MILLIGRAM, BID (2800 MG)
     Route: 065
     Dates: start: 20250729
  7. PEPOSERTIB [Suspect]
     Active Substance: PEPOSERTIB
     Dosage: 100 MILLIGRAM, BID (2800 MG)
     Route: 065
     Dates: start: 20250826, end: 20250908
  8. DULOXETINE [Suspect]
     Active Substance: DULOXETINE
     Indication: Product used for unknown indication
     Dosage: UNK
     Route: 065
  9. LORAZEPAM [Suspect]
     Active Substance: LORAZEPAM
     Indication: Product used for unknown indication
     Dosage: UNK
     Route: 065
  10. PROCHLORPERAZINE [Suspect]
     Active Substance: PROCHLORPERAZINE
     Indication: Product used for unknown indication
     Dosage: UNK
     Route: 065

REACTIONS (8)
  - Malignant pleural effusion [Recovering/Resolving]
  - Abdominal distension [Recovering/Resolving]
  - Hypophagia [Recovering/Resolving]
  - Dyspnoea exertional [Recovering/Resolving]
  - Atelectasis [Recovering/Resolving]
  - Dyspnoea [Recovering/Resolving]
  - Vomiting [Recovering/Resolving]
  - Nausea [Recovering/Resolving]

NARRATIVE: CASE EVENT DATE: 20250910
